FAERS Safety Report 9999169 (Version 1)
Quarter: 2014Q1

REPORT INFORMATION
  Report Type: Spontaneous
  Country: US (occurrence: None)
  Receive Date: 20140311
  Receipt Date: 20140311
  Transmission Date: 20141002
  Serious: Yes (Hospitalization, Other)
  Sender: FDA-Public Use
  Company Number: None

PATIENT
  Age: 32 Year
  Sex: Female
  Weight: 60.78 kg

DRUGS (2)
  1. SINGULAIR [Suspect]
     Indication: SEASONAL ALLERGY
     Dosage: TAKEN BY MOUTH
     Dates: start: 20120101, end: 20140308
  2. SINGULAIR [Suspect]
     Indication: ASTHMA
     Dosage: TAKEN BY MOUTH
     Dates: start: 20120101, end: 20140308

REACTIONS (11)
  - Insomnia [None]
  - Anxiety [None]
  - Depression [None]
  - Panic attack [None]
  - Anger [None]
  - Crying [None]
  - Weight increased [None]
  - Social phobia [None]
  - Apathy [None]
  - Dizziness [None]
  - Impaired work ability [None]
